FAERS Safety Report 5033251-6 (Version None)
Quarter: 2006Q2

REPORT INFORMATION
  Report Type: 
  Country: None (occurrence: None)
  Receive Date: 20060620
  Receipt Date: 20060608
  Transmission Date: 20061013
  Serious: Yes (Death)
  Sender: FDA-Public Use
  Company Number: DEWYE700808JUN06

PATIENT
  Age: 80 Year
  Sex: Male

DRUGS (2)
  1. TYGACIL [Suspect]
     Indication: KLEBSIELLA INFECTION
     Dates: start: 20060101
  2. TYGACIL [Suspect]
     Indication: STAPHYLOCOCCAL INFECTION
     Dates: start: 20060101

REACTIONS (2)
  - KLEBSIELLA INFECTION [None]
  - SEPSIS [None]
